FAERS Safety Report 9758469 (Version 1)
Quarter: 2013Q4

REPORT INFORMATION
  Report Type: Spontaneous
  Country: US (occurrence: None)
  Receive Date: 20131216
  Receipt Date: 20131216
  Transmission Date: 20140711
  Serious: No
  Sender: FDA-Public Use
  Company Number: CABO-13002510

PATIENT
  Age: 88 Year
  Sex: Male

DRUGS (1)
  1. COMETRIQ [Suspect]
     Indication: PROSTATE CANCER
     Dosage: 100 MG, QD, ORAL?20 MG, QD, ORAL?80 MG, QD, ORAL?80 MG, QD-EXCEPT WED + SAT, ORAL

REACTIONS (4)
  - Fall [None]
  - Pyrexia [None]
  - Dizziness [None]
  - Blister [None]
